FAERS Safety Report 6086026-3 (Version None)
Quarter: 2009Q1

REPORT INFORMATION
  Report Type: 
  Country: None (occurrence: None)
  Receive Date: 20090220
  Receipt Date: 20090209
  Transmission Date: 20090719
  Serious: Yes (Hospitalization)
  Sender: FDA-Public Use
  Company Number: FR-AMGEN-UK018802

PATIENT
  Sex: Male
  Weight: 82 kg

DRUGS (6)
  1. KINERET [Suspect]
     Indication: RHEUMATOID ARTHRITIS
     Route: 058
     Dates: start: 20020308, end: 20020804
  2. METHOTREXATE [Concomitant]
     Route: 048
     Dates: start: 19970101
  3. SPECIAFOLDINE [Concomitant]
     Route: 048
     Dates: start: 19970101
  4. CORTANCYL [Concomitant]
     Route: 048
     Dates: start: 19970101
  5. DIFFU K [Concomitant]
     Route: 048
     Dates: start: 20010101
  6. HYDROXYCHLOROQUINE SULFATE [Concomitant]
     Route: 065

REACTIONS (3)
  - CELLULITIS GANGRENOUS [None]
  - INJECTION SITE CELLULITIS [None]
  - LYMPHANGITIS [None]
